FAERS Safety Report 6194843-4 (Version None)
Quarter: 2009Q2

REPORT INFORMATION
  Report Type: 
  Country: None (occurrence: None)
  Receive Date: 20090515
  Receipt Date: 20090506
  Transmission Date: 20091009
  Serious: Yes (Hospitalization)
  Sender: FDA-Public Use
  Company Number: 1000006212

PATIENT
  Age: 79 Year
  Sex: Female
  Weight: 80.3 kg

DRUGS (13)
  1. CELEXA [Suspect]
     Dosage: 20 MG (20 MG,1 IN 1 D),ORAL
     Route: 048
  2. AVALIDE [Suspect]
     Dosage: 1 DOSAGE FORMS (1 DOSAGE FORMS,1 IN 1 D),ORAL
     Route: 048
  3. ARICEPT [Concomitant]
  4. ASAPHEN [Concomitant]
  5. CALCIUM [Concomitant]
  6. CELEBREX [Concomitant]
  7. LACTULOSE [Concomitant]
  8. LASIX [Concomitant]
  9. LIPITOR [Concomitant]
  10. LOPRESSOR SR [Concomitant]
  11. LOSEC [Concomitant]
  12. SYNTHROID [Concomitant]
  13. VITAMIN D [Concomitant]

REACTIONS (7)
  - ANOREXIA [None]
  - BLOOD OSMOLARITY DECREASED [None]
  - BLOOD SODIUM DECREASED [None]
  - DIARRHOEA [None]
  - DRUG INTERACTION [None]
  - NAUSEA [None]
  - VOMITING [None]
